FAERS Safety Report 25424678 (Version 2)
Quarter: 2025Q3

REPORT INFORMATION
  Report Type: Spontaneous
  Country: US (occurrence: US)
  Receive Date: 20250611
  Receipt Date: 20250705
  Transmission Date: 20251020
  Serious: No
  Sender: SANOFI AVENTIS
  Company Number: US-SA-2025SA165476

PATIENT
  Age: 65 Year
  Sex: Female

DRUGS (1)
  1. DUPIXENT [Suspect]
     Active Substance: DUPILUMAB
     Dosage: 300 MG, QOW
     Route: 058

REACTIONS (3)
  - Injection site swelling [Not Recovered/Not Resolved]
  - Injection site pain [Unknown]
  - Injection site erythema [Recovered/Resolved]
